FAERS Safety Report 8096940 (Version 5)
Quarter: 2017Q2

REPORT INFORMATION
  Report Type: Report from Study
  Country: FR (occurrence: FR)
  Receive Date: 20110818
  Receipt Date: 20170414
  Transmission Date: 20170830
  Serious: Yes (Death, Hospitalization, Other)
  Sender: FDA-Public Use
  Company Number: FR-AMGEN-FRACT2011040714

PATIENT
  Age: 68 Year
  Sex: Male
  Weight: 82 kg

DRUGS (23)
  1. ISOPTIN [Concomitant]
     Active Substance: VERAPAMIL HYDROCHLORIDE
     Indication: HYPERTENSION
     Dosage: 120 MG, BID
     Route: 048
     Dates: start: 200002
  2. VERAPAMIL [Concomitant]
     Active Substance: VERAPAMIL HYDROCHLORIDE
     Indication: HYPERTENSION
     Dosage: 120 MG, BID
     Route: 048
     Dates: start: 2004
  3. RIVOTRIL [Concomitant]
     Active Substance: CLONAZEPAM
     Indication: MUSCLE SPASMS
     Dosage: UNK UNK, QD
     Route: 048
     Dates: start: 2004
  4. CACIT D3 [Concomitant]
     Active Substance: CALCIUM\CHOLECALCIFEROL
     Indication: HYPOCALCAEMIA
     Dosage: 1 TAB
     Route: 048
     Dates: start: 201306
  5. LAROXYL [Concomitant]
     Active Substance: AMITRIPTYLINE
     Indication: TEMPOROMANDIBULAR JOINT SYNDROME
     Dosage: DROP
     Route: 048
     Dates: start: 20130731
  6. DENOSUMAB [Suspect]
     Active Substance: DENOSUMAB
     Indication: BONE GIANT CELL TUMOUR
     Dosage: 120 MG, Q4WK
     Route: 058
     Dates: start: 20091215, end: 20120625
  7. KARDEGIC [Concomitant]
     Active Substance: ASPIRIN LYSINE
     Indication: CORONARY ARTERY INSUFFICIENCY
  8. INEXIUM [Concomitant]
     Active Substance: ESOMEPRAZOLE
     Indication: DYSPEPSIA
     Dosage: 20 MG, QD
     Route: 048
     Dates: start: 2004
  9. POTASSIUM [Concomitant]
     Active Substance: POTASSIUM
     Indication: HYPOPHOSPHATAEMIA
  10. MOVICOL [Concomitant]
     Active Substance: POLYETHYLENE GLYCOL 3350\POTASSIUM CHLORIDE\SODIUM BICARBONATE\SODIUM CHLORIDE
     Indication: CONSTIPATION
     Dosage: DROP
     Route: 048
     Dates: start: 20120315
  11. BRONCHOKOD [Concomitant]
     Active Substance: CARBOCYSTEINE
     Indication: BRONCHITIS
     Dosage: 1 TABLESPOON
     Route: 048
     Dates: start: 20120228, end: 20120306
  12. EFFERALGAN [Concomitant]
     Active Substance: ACETAMINOPHEN
     Indication: TEMPOROMANDIBULAR JOINT SYNDROME
     Dosage: 1 G, AS NECESSARY
     Dates: start: 20110725
  13. AUGMENTIN [Concomitant]
     Active Substance: AMOXICILLIN\CLAVULANATE POTASSIUM
     Indication: BRONCHITIS
     Dosage: 1 TAB
     Route: 048
     Dates: start: 20120228, end: 201305
  14. KARDEGIC [Concomitant]
     Active Substance: ASPIRIN LYSINE
     Indication: PROPHYLAXIS
     Dosage: 75 MG, QD
     Route: 048
     Dates: start: 2004
  15. CRESTOR [Concomitant]
     Active Substance: ROSUVASTATIN CALCIUM
     Indication: HYPERCHOLESTEROLAEMIA
     Dosage: UNK UNK, QD
     Route: 048
     Dates: start: 2004
  16. PHOSPHORE [Concomitant]
     Indication: OSTEOMALACIA
     Dosage: 1500 MG, TID
     Route: 048
     Dates: start: 20100727
  17. LYRICA [Concomitant]
     Active Substance: PREGABALIN
     Indication: TEMPOROMANDIBULAR JOINT SYNDROME
     Dosage: 50 MG, QD
     Route: 048
     Dates: start: 20130703, end: 20130710
  18. DAFLON [Concomitant]
     Active Substance: DIOSMIN\HESPERIDIN
     Indication: HAEMORRHOIDS
     Dosage: 500 MG, QD
     Route: 048
     Dates: start: 20120423, end: 201205
  19. ROCALTROL [Concomitant]
     Active Substance: CALCITRIOL
     Indication: OSTEOMALACIA
     Dosage: 0.5 MUG, UNK
     Dates: start: 2004
  20. DALACIN [Concomitant]
     Active Substance: CLINDAMYCIN
     Dosage: 900 MG, QD
     Dates: start: 20110418
  21. POTASSIUM [Concomitant]
     Active Substance: POTASSIUM
     Indication: OSTEOMALACIA
     Dosage: 1 UNIT, QD
     Route: 048
     Dates: start: 20130916
  22. VOGALENE [Concomitant]
     Active Substance: METOPIMAZINE
     Indication: NAUSEA
     Dosage: 1 TAB
     Route: 048
     Dates: start: 20130703, end: 20130710
  23. MONOCRIXO [Concomitant]
     Active Substance: TRAMADOL HYDROCHLORIDE
     Indication: TEMPOROMANDIBULAR JOINT SYNDROME
     Dosage: 100 MG, QD
     Route: 048
     Dates: start: 20130703, end: 20130710

REACTIONS (2)
  - Oral cavity fistula [Fatal]
  - Osteonecrosis of jaw [Recovered/Resolved]

NARRATIVE: CASE EVENT DATE: 20110419
